FAERS Safety Report 16630774 (Version 2)
Quarter: 2019Q3

REPORT INFORMATION
  Report Type: Report from Study
  Country: US (occurrence: US)
  Receive Date: 20190725
  Receipt Date: 20190912
  Transmission Date: 20191004
  Serious: Yes (Other)
  Sender: FDA-Public Use
  Company Number: PHEH2019US030599

PATIENT
  Sex: Female

DRUGS (1)
  1. ENTRESTO [Suspect]
     Active Substance: SACUBITRIL\VALSARTAN
     Indication: CARDIAC FAILURE CONGESTIVE
     Route: 048

REACTIONS (7)
  - Concomitant disease aggravated [Unknown]
  - Pulmonary fibrosis [Unknown]
  - Oropharyngeal discomfort [Recovering/Resolving]
  - Cough [Unknown]
  - Dyspnoea [Not Recovered/Not Resolved]
  - Dysphagia [Unknown]
  - Gait inability [Not Recovered/Not Resolved]
